FAERS Safety Report 9155596 (Version 1)
Quarter: 2013Q1

REPORT INFORMATION
  Report Type: Spontaneous
  Country: US (occurrence: US)
  Receive Date: 20130311
  Receipt Date: 20130311
  Transmission Date: 20140127
  Serious: No
  Sender: FDA-Public Use
  Company Number: US-ASTRAZENECA-2013SE11284

PATIENT
  Sex: Female

DRUGS (10)
  1. NEXIUM [Suspect]
     Indication: GASTROOESOPHAGEAL REFLUX DISEASE
     Route: 048
     Dates: start: 2006
  2. HUMIRA [Suspect]
     Indication: RHEUMATOID ARTHRITIS
     Route: 058
     Dates: start: 2006, end: 201106
  3. HUMIRA [Suspect]
     Indication: RHEUMATOID ARTHRITIS
     Route: 058
     Dates: start: 20120904
  4. LEVOTHYROXINE [Concomitant]
     Indication: THYROID DISORDER
  5. MISOPROSTOL [Concomitant]
  6. GABAPENTIN [Concomitant]
     Indication: FIBROMYALGIA
  7. TOPAMAX [Concomitant]
     Indication: MIGRAINE
  8. PAXIL [Concomitant]
     Indication: DEPRESSION
  9. ALLEGRA [Concomitant]
     Indication: SEASONAL ALLERGY
  10. OMEPRAZOLE [Concomitant]
     Indication: GASTROOESOPHAGEAL REFLUX DISEASE

REACTIONS (4)
  - Fungal infection [Unknown]
  - Rheumatoid arthritis [Not Recovered/Not Resolved]
  - Drug effect incomplete [Unknown]
  - Incorrect storage of drug [Recovered/Resolved]
